FAERS Safety Report 8564769-7 (Version None)
Quarter: 2012Q3

REPORT INFORMATION
  Report Type: 
  Country: None (occurrence: None)
  Receive Date: 20120803
  Receipt Date: 20120726
  Transmission Date: 20120928
  Serious: Yes (Hospitalization)
  Sender: FDA-Public Use
  Company Number: US-BAYER-2012-076173

PATIENT
  Age: 46 Year
  Sex: Female
  Weight: 68 kg

DRUGS (9)
  1. FERROUS SULFATE TAB [Concomitant]
     Dosage: 325 MG, ONE TIME PER DAY
     Route: 048
  2. DROSPIRENONE AND ETHINYL ESTRADIOL [Suspect]
  3. DROSPIRENONE AND ETHINYL ESTRADIOL [Concomitant]
     Dosage: UNK
     Dates: start: 20120130, end: 20120222
  4. YASMIN [Suspect]
  5. DOCUSATE [Concomitant]
     Indication: CONSTIPATION
     Dosage: 100 MG, BID AS NEEDED
     Route: 048
  6. YAZ [Suspect]
     Indication: MENSTRUATION IRREGULAR
  7. DROSPIRENONE AND ETHINYL ESTRADIOL [Suspect]
  8. IBUPROFEN [Concomitant]
     Indication: PAIN
     Dosage: 600 MG, EVERY 6 HOURS AS NEEDED
     Route: 048
  9. ACETAMINOPHEN AND OXYCODONE HCL [Concomitant]
     Dosage: 5-325MG, Q4HR, 1TO 2 TABS AS NEEDED

REACTIONS (1)
  - PULMONARY EMBOLISM [None]
